FAERS Safety Report 23710625 (Version 1)
Quarter: 2024Q2

REPORT INFORMATION
  Report Type: Spontaneous
  Country: CA (occurrence: CA)
  Receive Date: 20240405
  Receipt Date: 20240405
  Transmission Date: 20240716
  Serious: Yes (Other)
  Sender: FDA-Public Use
  Company Number: CA-AMNEAL PHARMACEUTICALS-2024-AMRX-01062

PATIENT
  Age: 64 Year
  Sex: Male

DRUGS (11)
  1. DOXORUBICIN HYDROCHLORIDE [Suspect]
     Active Substance: DOXORUBICIN HYDROCHLORIDE
     Dosage: 20 MG/M2 EVERY 3 WEEKS FOR 13 MONTHS
     Route: 065
  2. DOXORUBICIN HYDROCHLORIDE [Suspect]
     Active Substance: DOXORUBICIN HYDROCHLORIDE
     Dosage: THREE MONTHS LATER (CUMULATIVE DOSE, 800 MG/M2)
     Route: 065
  3. TACROLIMUS [Concomitant]
     Active Substance: TACROLIMUS
     Indication: Wound
     Dosage: 5 MILLIGRAM, DAILY
     Route: 065
  4. MYCOPHENOLIC ACID [Concomitant]
     Active Substance: MYCOPHENOLIC ACID
     Indication: Product used for unknown indication
     Dosage: 360 MILLIGRAM, BID
     Route: 065
  5. MYCOPHENOLIC ACID [Concomitant]
     Active Substance: MYCOPHENOLIC ACID
     Dosage: DOSE DECREASED
     Route: 065
  6. PREDNISONE [Concomitant]
     Active Substance: PREDNISONE
     Indication: Product used for unknown indication
     Dosage: 5 MILLIGRAM, DAILY
     Route: 065
  7. ASPIRIN [Concomitant]
     Active Substance: ASPIRIN
     Indication: Product used for unknown indication
     Dosage: 81 MILLIGRAM, DAILY
     Route: 065
  8. BISOPROLOL [Concomitant]
     Active Substance: BISOPROLOL\BISOPROLOL FUMARATE
     Indication: Product used for unknown indication
     Dosage: 5 MILLIGRAM, DAILY
     Route: 065
  9. RAMIPRIL [Concomitant]
     Active Substance: RAMIPRIL
     Indication: Product used for unknown indication
     Dosage: 10 MILLIGRAM, DAILY
     Route: 065
  10. PRAVASTATIN [Concomitant]
     Active Substance: PRAVASTATIN
     Indication: Product used for unknown indication
     Dosage: 40 MILLIGRAM, DAILY
     Route: 065
  11. SIROLIMUS [Concomitant]
     Active Substance: SIROLIMUS
     Indication: Neoplasm malignant
     Dosage: UNK
     Route: 065

REACTIONS (4)
  - Thrombotic microangiopathy [Recovered/Resolved]
  - Aortic stenosis [Unknown]
  - Complications of transplanted kidney [Recovering/Resolving]
  - Proteinuria [Unknown]
